FAERS Safety Report 25886391 (Version 3)
Quarter: 2025Q4

REPORT INFORMATION
  Report Type: Report from Study
  Country: AR (occurrence: AR)
  Receive Date: 20251006
  Receipt Date: 20251031
  Transmission Date: 20260117
  Serious: Yes (Other)
  Sender: TAKEDA
  Company Number: AR-TAKEDA-2025TUS087485

PATIENT
  Age: 52 Year
  Sex: Female

DRUGS (2)
  1. VELAGLUCERASE ALFA [Suspect]
     Active Substance: VELAGLUCERASE ALFA
     Indication: Gaucher^s disease
     Dosage: UNK UNK, Q2WEEKS
     Dates: start: 20140107
  2. VELAGLUCERASE ALFA [Suspect]
     Active Substance: VELAGLUCERASE ALFA
     Dosage: UNK

REACTIONS (4)
  - Von Willebrand^s disease [Unknown]
  - Rectal haemorrhage [Recovering/Resolving]
  - Anaemia [Unknown]
  - Gastroenteritis bacterial [Recovering/Resolving]

NARRATIVE: CASE EVENT DATE: 20251001
